FAERS Safety Report 7899672-9 (Version None)
Quarter: 2011Q4

REPORT INFORMATION
  Report Type: 
  Country: None (occurrence: None)
  Receive Date: 20111107
  Receipt Date: 20110916
  Transmission Date: 20120403
  Serious: No
  Sender: FDA-Public Use
  Company Number: US-AMGEN-USASP2011048028

PATIENT
  Sex: Female

DRUGS (3)
  1. PREDNISONE [Concomitant]
  2. LYRICA [Concomitant]
  3. ENBREL [Suspect]
     Indication: RHEUMATOID ARTHRITIS
     Dosage: 50 MG, QWK
     Dates: start: 20110701

REACTIONS (6)
  - VISION BLURRED [None]
  - HEPATIC ENZYME INCREASED [None]
  - ABNORMAL DREAMS [None]
  - INJECTION SITE HAEMATOMA [None]
  - NECK PAIN [None]
  - HOT FLUSH [None]
